FAERS Safety Report 11873661 (Version 2)
Quarter: 2016Q1

REPORT INFORMATION
  Report Type: Spontaneous
  Country: JP (occurrence: JP)
  Receive Date: 20151228
  Receipt Date: 20160104
  Transmission Date: 20160526
  Serious: Yes (Death)
  Sender: FDA-Public Use
  Company Number: JP-DSJP-DSJ-2015-139529

PATIENT

DRUGS (3)
  1. NIFEDIPINE. [Suspect]
     Active Substance: NIFEDIPINE
     Indication: ACCIDENTAL EXPOSURE TO PRODUCT
     Dosage: 120 MG, TOTAL
     Route: 048
     Dates: start: 20140419, end: 20140419
  2. OLMETEC TABLETS 20MG [Suspect]
     Active Substance: OLMESARTAN MEDOXOMIL
     Indication: ACCIDENTAL EXPOSURE TO PRODUCT
     Dosage: 40 MG, TOTAL
     Route: 048
     Dates: start: 20140419, end: 20140419
  3. CRESTOR [Concomitant]
     Active Substance: ROSUVASTATIN CALCIUM
     Indication: ACCIDENTAL EXPOSURE TO PRODUCT
     Dosage: 7.5 MG, TOTAL
     Route: 048
     Dates: start: 20140419, end: 20140419

REACTIONS (3)
  - Accidental exposure to product by child [Unknown]
  - Blood pressure decreased [Fatal]
  - Cardiac arrest [Fatal]

NARRATIVE: CASE EVENT DATE: 20140419
